FAERS Safety Report 24411139 (Version 3)
Quarter: 2024Q4

REPORT INFORMATION
  Report Type: Spontaneous
  Country: US (occurrence: US)
  Receive Date: 20241008
  Receipt Date: 20241204
  Transmission Date: 20250115
  Serious: No
  Sender: JOHNSON AND JOHNSON
  Company Number: US-JNJFOC-20241022230

PATIENT
  Sex: Female

DRUGS (1)
  1. TYLENOL 8 HR ARTHRITIS PAIN [Suspect]
     Active Substance: ACETAMINOPHEN
     Indication: Arthralgia
     Dosage: 2 IN THE MORNING AND 2 IN THE EVENING DAILY??FREQUENCY:2 IN THE MORNING AND 2 IN EVENING DAILY
     Route: 065
     Dates: start: 20231007

REACTIONS (1)
  - Drug ineffective [Unknown]
